FAERS Safety Report 10101485 (Version 1)
Quarter: 2014Q2

REPORT INFORMATION
  Report Type: Spontaneous
  Country: US (occurrence: None)
  Receive Date: 20140422
  Receipt Date: 20140422
  Transmission Date: 20141212
  Serious: Yes (Hospitalization)
  Sender: FDA-Public Use
  Company Number: IPC201404-000168

PATIENT
  Age: 59 Year
  Sex: Male

DRUGS (4)
  1. METFORMIN HYDROCHLORIDE (METFORMIN HYDROCHLORIDE) (METFORMIN HYDROCHLORIDE) [Suspect]
     Dosage: 60 (500 MG TABLETS)
  2. AMLODIPINE BESILATE (AMLODIPINE BESILATE) (AMLODIPINE BESILATE) [Suspect]
     Dosage: 30 (10 MG) TABLETS
  3. LISINOPRIL (LISINOPRIL) (LISINOPRIL) [Suspect]
     Dosage: 30 (10 MG TABLET)
  4. SIMVASTATIN (SIMVASTATIN) (SIMVASTATIN) [Suspect]

REACTIONS (6)
  - Cardiogenic shock [None]
  - Renal failure acute [None]
  - Lactic acidosis [None]
  - Hypoglycaemia [None]
  - Suicide attempt [None]
  - Intentional overdose [None]
